FAERS Safety Report 4665522-7 (Version None)
Quarter: 2005Q2

REPORT INFORMATION
  Report Type: 
  Country: None (occurrence: None)
  Receive Date: 20050519
  Receipt Date: 20040825
  Transmission Date: 20051028
  Serious: Yes (Other)
  Sender: FDA-Public Use
  Company Number: US-BRISTOL-MYERS SQUIBB COMPANY-12683256

PATIENT

DRUGS (1)
  1. MITOMYCIN [Suspect]
     Dosage: 1 MG/ML SOLUTION

REACTIONS (3)
  - EYE IRRITATION [None]
  - MEDICATION ERROR [None]
  - VISION BLURRED [None]
